FAERS Safety Report 5271635-1 (Version None)
Quarter: 2007Q1

REPORT INFORMATION
  Report Type: 
  Country: None (occurrence: None)
  Receive Date: 20070321
  Receipt Date: 20070315
  Transmission Date: 20070707
  Serious: Yes (Hospitalization, Disabling, Other)
  Sender: FDA-Public Use
  Company Number: US-PFIZER INC-2007004499

PATIENT
  Sex: Female
  Weight: 79.4 kg

DRUGS (1)
  1. BEXTRA [Suspect]
     Indication: BACK PAIN
     Route: 048

REACTIONS (1)
  - CEREBROVASCULAR ACCIDENT [None]
